FAERS Safety Report 4444419-1 (Version None)
Quarter: 2004Q3

REPORT INFORMATION
  Report Type: 
  Country: None (occurrence: None)
  Receive Date: 20040902
  Receipt Date: 20040820
  Transmission Date: 20050211
  Serious: Yes (Other)
  Sender: FDA-Public Use
  Company Number: 2004-DE-04475GD

PATIENT
  Age: 49 Year
  Sex: Female

DRUGS (3)
  1. DIPYRIDAMOLE [Suspect]
     Indication: THROMBOANGIITIS OBLITERANS
     Dosage: 50 MG (NR, EVERY 12 HOURS), IV
     Route: 042
  2. ENOXAPARIN SODIUM [Suspect]
     Indication: THROMBOANGIITIS OBLITERANS
  3. INDOMETHACIN [Suspect]
     Indication: THROMBOANGIITIS OBLITERANS
     Dosage: 100 MG (NR, TWICE DAILY), PR

REACTIONS (4)
  - ABDOMINAL SYMPTOM [None]
  - ACUTE RESPIRATORY DISTRESS SYNDROME [None]
  - GASTROINTESTINAL HAEMORRHAGE [None]
  - PLEURAL EFFUSION [None]
